FAERS Safety Report 11008285 (Version 1)
Quarter: 2015Q1

REPORT INFORMATION
  Report Type: Spontaneous
  Country: US (occurrence: None)
  Receive Date: 20150313
  Receipt Date: 20150313
  Transmission Date: 20150721
  Serious: Yes (Hospitalization)
  Sender: FDA-Public Use
  Company Number: GNE261595

PATIENT
  Age: 62 Year
  Sex: Male
  Weight: 163.3 kg

DRUGS (10)
  1. NASONEX [Concomitant]
     Active Substance: MOMETASONE FUROATE
  2. FLOMAX (UNITED STATES) (TAMSULOSIN HYDROCHLORIDE) [Concomitant]
  3. ASMANEX [Concomitant]
     Active Substance: MOMETASONE FUROATE
  4. LASIX [Concomitant]
     Active Substance: FUROSEMIDE
  5. PROVENTIL (SALBUTAMOL) [Concomitant]
  6. SPIRIVA (TIOTROPIUM BROMIDE) [Concomitant]
  7. XOLAIR [Suspect]
     Active Substance: OMALIZUMAB
     Indication: ASTHMA
     Dates: end: 20080515
  8. PREDNISONE (PREDNISONE) [Concomitant]
     Active Substance: PREDNISONE
  9. ACCUPRIL [Concomitant]
     Active Substance: QUINAPRIL HYDROCHLORIDE
  10. FEXOFENADINE [Concomitant]
     Active Substance: FEXOFENADINE\FEXOFENADINE HYDROCHLORIDE

REACTIONS (4)
  - Haematoma [None]
  - Pruritus [None]
  - Blood pressure decreased [None]
  - Supraventricular tachycardia [None]

NARRATIVE: CASE EVENT DATE: 20080515
